FAERS Safety Report 10838845 (Version 1)
Quarter: 2015Q1

REPORT INFORMATION
  Report Type: Spontaneous
  Country: IN (occurrence: None)
  Receive Date: 20150218
  Receipt Date: 20150218
  Transmission Date: 20150721
  Serious: Yes (Hospitalization)
  Sender: FDA-Public Use
  Company Number: 2015SCAL000037

PATIENT
  Age: 29 Year
  Sex: Female

DRUGS (4)
  1. CLOZAPINE. [Concomitant]
     Active Substance: CLOZAPINE
  2. VALPROATE (VALPROATE SODIUM) [Concomitant]
     Active Substance: VALPROATE SODIUM
  3. AMISULPIRIDE [Concomitant]
  4. FLUOXETINE HYDROCHLORIDE. [Suspect]
     Active Substance: FLUOXETINE HYDROCHLORIDE
     Indication: DEPRESSIVE SYMPTOM
     Dosage: 60 MG, UNK, UNKNOWN

REACTIONS (7)
  - Pulmonary hypertension [None]
  - Dyspnoea exertional [None]
  - Tricuspid valve incompetence [None]
  - Psychiatric symptom [None]
  - Left ventricular hypertrophy [None]
  - Condition aggravated [None]
  - Mitral valve incompetence [None]
